FAERS Safety Report 7644361-9 (Version None)
Quarter: 2011Q3

REPORT INFORMATION
  Report Type: 
  Country: None (occurrence: None)
  Receive Date: 20110729
  Receipt Date: 20110718
  Transmission Date: 20111222
  Serious: Yes (Other)
  Sender: FDA-Public Use
  Company Number: BR-ELI_LILLY_AND_COMPANY-BR201107004906

PATIENT
  Age: 61 Year
  Sex: Male

DRUGS (7)
  1. SINVASTATINA [Concomitant]
     Dosage: UNK, QD
     Route: 065
  2. CLOPIDOGREL [Concomitant]
     Dosage: UNK, QD
     Route: 065
  3. CLONAZEPAM [Concomitant]
     Dosage: 0.25 DF, QD
  4. BYETTA [Suspect]
     Dosage: 10 UG, BID
     Dates: start: 20100101
  5. METFORMIN HCL [Concomitant]
     Dosage: 850 MG, BID
     Route: 065
  6. DIOVAN [Concomitant]
     Dosage: 160 MG, QD
  7. ASPIRIN [Concomitant]
     Dosage: UNK UNK, BID
     Route: 065

REACTIONS (1)
  - HEPATIC CYST [None]
